FAERS Safety Report 14650656 (Version 2)
Quarter: 2018Q3

REPORT INFORMATION
  Report Type: Report from Study
  Country: US (occurrence: US)
  Receive Date: 20180316
  Receipt Date: 20180822
  Transmission Date: 20181010
  Serious: Yes (Disabling)
  Sender: FDA-Public Use
  Company Number: US-SA-2015SA104974

PATIENT
  Age: 45 Year
  Sex: Male

DRUGS (1)
  1. AGALSIDASE BETA [Suspect]
     Active Substance: AGALSIDASE BETA
     Indication: FABRY^S DISEASE
     Dosage: DOSE: 80 (UNITS NOT REPORTED) FREQUENCY: Q2
     Route: 041
     Dates: start: 20030728

REACTIONS (6)
  - Pain [Not Recovered/Not Resolved]
  - Impaired work ability [Unknown]
  - Fatigue [Unknown]
  - Headache [Unknown]
  - Temperature intolerance [Unknown]
  - Affective disorder [Unknown]

NARRATIVE: CASE EVENT DATE: 2016
